FAERS Safety Report 25370980 (Version 2)
Quarter: 2025Q2

REPORT INFORMATION
  Report Type: Spontaneous
  Country: JP (occurrence: JP)
  Receive Date: 20250528
  Receipt Date: 20250619
  Transmission Date: 20250716
  Serious: Yes (Other)
  Sender: BAXTER
  Company Number: JP-shionogi-202500005299

PATIENT
  Sex: Female

DRUGS (4)
  1. CYCLOPHOSPHAMIDE [Suspect]
     Active Substance: CYCLOPHOSPHAMIDE
     Indication: Product used for unknown indication
     Dosage: 600 MG/M2, QD (1 DAY), AC THERAPY, DOSAGE FORM: INJECTION
     Route: 042
     Dates: start: 20250121, end: 202503
  2. CYCLOPHOSPHAMIDE [Suspect]
     Active Substance: CYCLOPHOSPHAMIDE
     Dosage: 500 MG/M2, QD (1 DAY) AC THERAPY, RESUMED, DOSAGE FORM: INJECTION
     Route: 042
     Dates: start: 20250606
  3. DOXORUBICIN [Suspect]
     Active Substance: DOXORUBICIN
     Indication: Product used for unknown indication
     Route: 065
     Dates: start: 20250121, end: 202503
  4. DOXORUBICIN [Suspect]
     Active Substance: DOXORUBICIN
     Route: 065
     Dates: start: 20250606

REACTIONS (1)
  - Cystitis haemorrhagic [Recovering/Resolving]

NARRATIVE: CASE EVENT DATE: 20250125
